FAERS Safety Report 5093623-0 (Version None)
Quarter: 2006Q3

REPORT INFORMATION
  Report Type: 
  Country: None (occurrence: None)
  Receive Date: 20060829
  Receipt Date: 20060811
  Transmission Date: 20061208
  Serious: Yes (Hospitalization, Other)
  Sender: FDA-Public Use
  Company Number: US200608003947

PATIENT
  Sex: Male

DRUGS (2)
  1. HUMULIN N [Suspect]
     Dosage: SEE IMAGE
  2. HUMULIN R [Suspect]
     Dosage: SEE IMAGE

REACTIONS (5)
  - ACCIDENT [None]
  - BLOOD GLUCOSE DECREASED [None]
  - BLOOD GLUCOSE INCREASED [None]
  - REFUSAL OF TREATMENT BY PATIENT [None]
  - SOMNOLENCE [None]
